FAERS Safety Report 5793113-3 (Version None)
Quarter: 2008Q2

REPORT INFORMATION
  Report Type: 
  Country: None (occurrence: None)
  Receive Date: 20080626
  Receipt Date: 20080626
  Transmission Date: 20081010
  Serious: No
  Sender: FDA-Public Use
  Company Number: None

PATIENT
  Age: 48 Year
  Sex: Male

DRUGS (1)
  1. ARIPIPRAZOLE [Suspect]
     Indication: SCHIZOAFFECTIVE DISORDER
     Dosage: 15 MG AT BEDTIME PO
     Route: 048
     Dates: start: 20080611, end: 20080616

REACTIONS (2)
  - DYSTONIA [None]
  - FACIAL SPASM [None]
